FAERS Safety Report 9594703 (Version 1)
Quarter: 2013Q3

REPORT INFORMATION
  Report Type: Spontaneous
  Country: US (occurrence: None)
  Receive Date: 20130927
  Receipt Date: 20130927
  Transmission Date: 20140515
  Serious: Yes (Other)
  Sender: FDA-Public Use
  Company Number: RB-56425-2013

PATIENT
  Age: 60 Year
  Sex: Female
  Weight: 70.31 kg

DRUGS (2)
  1. SUBOXONE [Suspect]
     Indication: DRUG DEPENDENCE
     Route: 060
     Dates: start: 201304, end: 201305
  2. BUPRENORPHINE W/ NALOXONE [Suspect]
     Indication: DRUG DEPENDENCE
     Route: 060
     Dates: start: 201305

REACTIONS (4)
  - Abdominal pain upper [None]
  - Decreased appetite [None]
  - Weight decreased [None]
  - Wrong technique in drug usage process [None]
